FAERS Safety Report 4286299-3 (Version None)
Quarter: 2004Q1

REPORT INFORMATION
  Report Type: 
  Country: None (occurrence: None)
  Receive Date: 20040115
  Receipt Date: 20021212
  Transmission Date: 20041129
  Serious: Yes (Other)
  Sender: FDA-Public Use
  Company Number: NSADSS2002045700

PATIENT
  Age: 68 Year
  Sex: Male
  Weight: 108.4097 kg

DRUGS (4)
  1. DOXIL [Suspect]
     Indication: HEPATIC NEOPLASM MALIGNANT
     Dosage: 40 MG, 1 IN 1 MONTH, INTRAVENOUS DRIP
     Route: 041
     Dates: start: 20021206
  2. ANZEMET () DOLASETRON MESILATE [Concomitant]
  3. DECADRON [Concomitant]
  4. PROCRIT () ERYTHROPOEITIN [Concomitant]

REACTIONS (4)
  - ABDOMINAL PAIN [None]
  - BLOOD PRESSURE DECREASED [None]
  - GROIN PAIN [None]
  - HYPERSENSITIVITY [None]
